FAERS Safety Report 9803207 (Version 2)
Quarter: 2014Q1

REPORT INFORMATION
  Report Type: Spontaneous
  Country: US (occurrence: US)
  Receive Date: 20140108
  Receipt Date: 20140212
  Transmission Date: 20141002
  Serious: No
  Sender: FDA-Public Use
  Company Number: US-PFIZER INC-2014004785

PATIENT
  Age: 65 Year
  Sex: Female
  Weight: 61.22 kg

DRUGS (2)
  1. COLESTIPOL HCL [Suspect]
     Indication: BLOOD CHOLESTEROL DECREASED
     Dosage: 2 DF, 2X/DAY (TWO TABLETS IN THE MORNING AND TWO TABLETS AT NIGHT)
     Route: 048
     Dates: end: 201401
  2. LISINOPRIL [Concomitant]
     Indication: HYPERTENSION
     Dosage: UNK

REACTIONS (2)
  - Poor quality drug administered [Unknown]
  - Product quality issue [Unknown]
